FAERS Safety Report 20451673 (Version 2)
Quarter: 2022Q1

REPORT INFORMATION
  Report Type: Spontaneous
  Country: US (occurrence: US)
  Receive Date: 20220209
  Receipt Date: 20220223
  Transmission Date: 20220423
  Serious: No
  Sender: FDA-Public Use
  Company Number: US-BIOMARINAP-US-2022-141348

PATIENT
  Age: 6 Year
  Sex: Male
  Weight: 17.4 kg

DRUGS (1)
  1. VOXZOGO [Suspect]
     Active Substance: VOSORITIDE
     Indication: Product used for unknown indication
     Dosage: 0.4 MILLILITER, QD
     Route: 058
     Dates: start: 20220202

REACTIONS (3)
  - Viral infection [Recovered/Resolved]
  - Decreased appetite [Recovered/Resolved]
  - Vomiting [Recovered/Resolved]

NARRATIVE: CASE EVENT DATE: 20220203
